FAERS Safety Report 9915590 (Version 1)
Quarter: 2014Q1

REPORT INFORMATION
  Report Type: Spontaneous
  Country: DE (occurrence: DE)
  Receive Date: 20140221
  Receipt Date: 20140221
  Transmission Date: 20141002
  Serious: Yes (Other)
  Sender: FDA-Public Use
  Company Number: DE-DRREDDYS-GER/GER/14/0038272

PATIENT
  Age: 29 Year
  Sex: Female
  Weight: 61 kg

DRUGS (4)
  1. SERTRALINE [Suspect]
     Indication: DEPRESSION
     Route: 064
     Dates: start: 20120407, end: 20121206
  2. LAMOTRIGINE [Suspect]
     Indication: BIPOLAR DISORDER
     Route: 048
     Dates: start: 20120407, end: 20121206
  3. L-THYROXIN HENNING [Concomitant]
     Indication: AUTOIMMUNE THYROIDITIS
     Route: 048
     Dates: start: 20120407, end: 20121206
  4. CORDES BPO 5 [Concomitant]
     Indication: ACNE
     Dosage: (200MG/DAY)
     Route: 003
     Dates: start: 20120407, end: 20120518

REACTIONS (6)
  - Eclampsia [Unknown]
  - Pre-eclampsia [Unknown]
  - Headache [Unknown]
  - Premature delivery [Unknown]
  - Caesarean section [Unknown]
  - Exposure during pregnancy [Unknown]
